FAERS Safety Report 20730899 (Version 1)
Quarter: 2022Q2

REPORT INFORMATION
  Report Type: Spontaneous
  Country: US (occurrence: US)
  Receive Date: 20220420
  Receipt Date: 20220420
  Transmission Date: 20220720
  Serious: Yes (Death, Other)
  Sender: FDA-Public Use
  Company Number: US-APOTEX-2022AP006269

PATIENT
  Age: 88 Year
  Sex: Female

DRUGS (2)
  1. TEMOZOLOMIDE [Suspect]
     Active Substance: TEMOZOLOMIDE
     Indication: Post transplant lymphoproliferative disorder
     Dosage: UNK (7 EVERY 28 DAY CYCLES)
     Route: 065
  2. RITUXIMAB [Suspect]
     Active Substance: RITUXIMAB
     Indication: Post transplant lymphoproliferative disorder
     Dosage: UNK (4 WEEKS OF RITUXIMAB X 4 CYCLES)
     Route: 065

REACTIONS (1)
  - Sepsis [Fatal]
